FAERS Safety Report 10991707 (Version 3)
Quarter: 2015Q2

REPORT INFORMATION
  Report Type: Spontaneous
  Country: PT (occurrence: PT)
  Receive Date: 20150406
  Receipt Date: 20150416
  Transmission Date: 20150821
  Serious: Yes (Other)
  Sender: FDA-Public Use
  Company Number: PHHY2015PT037004

PATIENT
  Age: 10 Year
  Sex: Male

DRUGS (3)
  1. GP//PYRAZINAMIDE [Suspect]
     Active Substance: PYRAZINAMIDE
     Indication: TUBERCULOSIS
     Route: 065
  2. RIFAMPICIN [Interacting]
     Active Substance: RIFAMPIN
     Indication: TUBERCULOSIS
     Route: 065
  3. ISONIAZID. [Suspect]
     Active Substance: ISONIAZID
     Indication: TUBERCULOSIS
     Route: 065

REACTIONS (13)
  - Hyponatraemia [Recovered/Resolved]
  - Drug interaction [Recovered/Resolved]
  - Oliguria [Recovered/Resolved]
  - Hypoalbuminaemia [Recovered/Resolved]
  - Face oedema [Recovered/Resolved]
  - Platelet count decreased [Recovered/Resolved]
  - Anaphylactic reaction [Recovered/Resolved]
  - Hypersensitivity [Recovered/Resolved]
  - Myalgia [Recovered/Resolved]
  - Rash macular [Recovered/Resolved]
  - Urticaria [Recovered/Resolved]
  - Conjunctival hyperaemia [Recovered/Resolved]
  - Pyrexia [Recovered/Resolved]
